FAERS Safety Report 9002171 (Version 1)
Quarter: 2013Q1

REPORT INFORMATION
  Report Type: Spontaneous
  Country: US (occurrence: US)
  Receive Date: 20130107
  Receipt Date: 20130107
  Transmission Date: 20140127
  Serious: Yes (Other)
  Sender: FDA-Public Use
  Company Number: US-PFIZER INC-2013005864

PATIENT
  Sex: 0

DRUGS (1)
  1. LYRICA [Suspect]
     Dosage: UNK

REACTIONS (6)
  - Back disorder [Unknown]
  - Staphylococcus test positive [Unknown]
  - Bone pain [Unknown]
  - Fibromyalgia [Unknown]
  - Malaise [Unknown]
  - Haematoma [Unknown]
